FAERS Safety Report 8919251 (Version 2)
Quarter: 2013Q1

REPORT INFORMATION
  Report Type: Spontaneous
  Country: US (occurrence: US)
  Receive Date: 20121121
  Receipt Date: 20130109
  Transmission Date: 20140127
  Serious: No
  Sender: FDA-Public Use
  Company Number: US-PFIZER INC-2012290561

PATIENT
  Age: 60 Year
  Sex: Male
  Weight: 81.63 kg

DRUGS (8)
  1. ROBITUSSIN COUGH AND CHEST CONGESTION DM [Suspect]
     Indication: NASOPHARYNGITIS
     Dosage: 2 TEASPOONS OF UNKNOWN DOSE DAILY AS NEEDED
     Dates: start: 2012, end: 201211
  2. ROBITUSSIN COUGH AND CHEST CONGESTION DM [Suspect]
     Indication: UPPER RESPIRATORY TRACT INFECTION
  3. ROBITUSSIN PEAK COLD MAXIMUM STRENGTH COUGH PLUS CHEST CONGESTION DM [Interacting]
     Indication: NASOPHARYNGITIS
     Dosage: 2 TEASPOONS OF UNKNOWN DOSE 1-2 TIMES A DAY AS NEEDED
     Dates: start: 20121118
  4. ROBITUSSIN PEAK COLD MAXIMUM STRENGTH COUGH PLUS CHEST CONGESTION DM [Interacting]
     Indication: UPPER RESPIRATORY TRACT INFECTION
  5. BENZONATATE [Interacting]
     Indication: NASOPHARYNGITIS
     Dosage: 100 MG, 2X/DAY
     Dates: start: 201211
  6. BENZONATATE [Interacting]
     Indication: UPPER RESPIRATORY TRACT INFECTION
  7. CLONIDINE [Concomitant]
     Indication: HYPERTENSION
     Dosage: 0.3 MG, 2X/DAY
  8. SPIRONOLACTONE [Concomitant]
     Indication: HYPERTENSION
     Dosage: 100 MG, DAILY

REACTIONS (7)
  - Drug interaction [Unknown]
  - Drug ineffective [Unknown]
  - Expired drug administered [Unknown]
  - Poor quality drug administered [Unknown]
  - Feeling abnormal [Unknown]
  - Heart rate abnormal [Unknown]
  - Product taste abnormal [Unknown]
